FAERS Safety Report 6488648-4 (Version None)
Quarter: 2009Q4

REPORT INFORMATION
  Report Type: 
  Country: None (occurrence: None)
  Receive Date: 20091210
  Receipt Date: 20091126
  Transmission Date: 20100525
  Serious: Yes (Hospitalization)
  Sender: FDA-Public Use
  Company Number: GB-GENENTECH-295323

PATIENT
  Sex: Female

DRUGS (4)
  1. BEVACIZUMAB [Suspect]
     Indication: GASTRIC CANCER
     Dosage: 502 UNK, UNK
     Route: 042
     Dates: start: 20090519
  2. CAPECITABINE [Suspect]
     Indication: GASTRIC CANCER
     Dosage: 45150 UNK, UNK
     Route: 048
     Dates: start: 20090519
  3. CISPLATIN [Suspect]
     Indication: GASTRIC CANCER
     Dosage: 100 UNK, UNK
     Route: 042
     Dates: start: 20090519
  4. EPIRUBICIN [Suspect]
     Indication: GASTRIC CANCER
     Dosage: 85 UNK, UNK
     Route: 042
     Dates: start: 20090519

REACTIONS (1)
  - BILIARY TRACT DISORDER [None]
